FAERS Safety Report 6343527-8 (Version None)
Quarter: 2009Q3

REPORT INFORMATION
  Report Type: 
  Country: None (occurrence: None)
  Receive Date: 20090908
  Receipt Date: 20090827
  Transmission Date: 20100115
  Serious: Yes (Disabling)
  Sender: FDA-Public Use
  Company Number: US-BAYER-200929130NA

PATIENT
  Sex: Male

DRUGS (1)
  1. NEXAVAR [Suspect]
     Indication: HEPATIC NEOPLASM MALIGNANT
     Dosage: TOTAL DAILY DOSE: 800 MG  UNIT DOSE: 200 MG
     Route: 048
     Dates: start: 20090701

REACTIONS (7)
  - ASTHENIA [None]
  - DYSPNOEA [None]
  - MUSCULAR WEAKNESS [None]
  - NAUSEA [None]
  - NIGHT SWEATS [None]
  - PAIN IN EXTREMITY [None]
  - SKIN EXFOLIATION [None]
